FAERS Safety Report 11843464 (Version 1)
Quarter: 2015Q4

REPORT INFORMATION
  Report Type: Spontaneous
  Country: US (occurrence: US)
  Receive Date: 20151217
  Receipt Date: 20151217
  Transmission Date: 20160305
  Serious: No
  Sender: FDA-Public Use
  Company Number: US-HOSPIRA-2661751

PATIENT
  Age: 40 Year
  Sex: Female
  Weight: 96.62 kg

DRUGS (1)
  1. LIDOCAINE HYDROCHLORIDE. [Suspect]
     Active Substance: LIDOCAINE HYDROCHLORIDE
     Indication: IMPLANT SITE HYPOAESTHESIA
     Dosage: 1-2 ML, AS NEEDED
     Route: 058
     Dates: start: 20141201, end: 20141201

REACTIONS (2)
  - Poor quality drug administered [Recovered/Resolved]
  - Drug ineffective [Recovered/Resolved]

NARRATIVE: CASE EVENT DATE: 20141201
